FAERS Safety Report 14321429 (Version 5)
Quarter: 2018Q3

REPORT INFORMATION
  Report Type: Report from Study
  Country: DE (occurrence: DE)
  Receive Date: 20171223
  Receipt Date: 20180806
  Transmission Date: 20181010
  Serious: Yes (Death, Hospitalization)
  Sender: FDA-Public Use
  Company Number: DE-TEVA-2017-DE-835615

PATIENT
  Age: 58 Year
  Sex: Female
  Weight: 75 kg

DRUGS (15)
  1. DOCETAXEL. [Suspect]
     Active Substance: DOCETAXEL
     Route: 042
     Dates: start: 20150727
  2. PERTUZUMAB. [Suspect]
     Active Substance: PERTUZUMAB
     Route: 042
     Dates: start: 20150817
  3. LYRICA [Concomitant]
     Active Substance: PREGABALIN
     Indication: POLYNEUROPATHY
     Dosage: 25 MILLIGRAM DAILY;
     Route: 048
  4. SEVREDOL [Concomitant]
     Active Substance: MORPHINE
     Route: 048
  5. SEVREDOL [Concomitant]
     Active Substance: MORPHINE
     Indication: PAIN
     Dosage: 20 MILLIGRAM DAILY; AS REQUIRED
     Route: 048
  6. IBUPROFEN. [Concomitant]
     Active Substance: IBUPROFEN
     Indication: PAIN
     Dosage: 1600 MILLIGRAM DAILY; AS REQUIRED
     Route: 048
  7. PERTUZUMAB. [Suspect]
     Active Substance: PERTUZUMAB
     Indication: HER-2 POSITIVE BREAST CANCER
     Dosage: LOADING DOSE
     Route: 042
     Dates: start: 20150727, end: 20150727
  8. PERTUZUMAB. [Suspect]
     Active Substance: PERTUZUMAB
     Dosage: MAINTAINENCE DOSE
     Route: 042
     Dates: start: 20150817, end: 20160202
  9. DOCETAXEL. [Suspect]
     Active Substance: DOCETAXEL
     Indication: BREAST CANCER
     Route: 042
     Dates: start: 20150727, end: 20151020
  10. HERCEPTIN [Suspect]
     Active Substance: TRASTUZUMAB
     Indication: HER-2 POSITIVE BREAST CANCER
     Dosage: MAINTAINENCE DOSE
     Route: 042
     Dates: start: 20150817, end: 20160202
  11. LYRICA [Concomitant]
     Active Substance: PREGABALIN
     Dosage: 75 MILLIGRAM DAILY;
     Route: 048
  12. FENTANYL. [Concomitant]
     Active Substance: FENTANYL
     Route: 065
  13. HERCEPTIN [Suspect]
     Active Substance: TRASTUZUMAB
     Dosage: LOADING DOSE
     Route: 042
     Dates: start: 20150727
  14. FENTANYL. [Concomitant]
     Active Substance: FENTANYL
     Indication: PAIN
     Dosage: DOSE: 75 UG/H
     Route: 065
  15. IBUPROFEN. [Concomitant]
     Active Substance: IBUPROFEN
     Route: 048

REACTIONS (2)
  - Erysipelas [Fatal]
  - Death [Fatal]

NARRATIVE: CASE EVENT DATE: 20150824
